FAERS Safety Report 15172715 (Version 1)
Quarter: 2018Q3

REPORT INFORMATION
  Report Type: Spontaneous
  Country: US (occurrence: US)
  Receive Date: 20180720
  Receipt Date: 20180720
  Transmission Date: 20181010
  Serious: No
  Sender: FDA-Public Use
  Company Number: US-ROCHE-2004752

PATIENT

DRUGS (1)
  1. TNKASE [Suspect]
     Active Substance: TENECTEPLASE
     Indication: ISCHAEMIC STROKE
     Dosage: ONGOING: NO
     Route: 065
     Dates: start: 20171004

REACTIONS (2)
  - No adverse event [Unknown]
  - Drug administration error [Unknown]

NARRATIVE: CASE EVENT DATE: 20171004
